FAERS Safety Report 9452114 (Version 1)
Quarter: 2013Q3

REPORT INFORMATION
  Report Type: Spontaneous
  Country: US (occurrence: US)
  Receive Date: 20130812
  Receipt Date: 20130812
  Transmission Date: 20140515
  Serious: No
  Sender: FDA-Public Use
  Company Number: US-BIOGENIDEC-2013BI073636

PATIENT
  Sex: Male

DRUGS (10)
  1. TYSABRI [Suspect]
     Indication: MULTIPLE SCLEROSIS
     Route: 042
     Dates: start: 20120820, end: 20121015
  2. VISTARIL [Concomitant]
     Route: 048
  3. NAPROXEN [Concomitant]
     Route: 048
  4. QVAR [Concomitant]
  5. FLONASE [Concomitant]
  6. SINGULAIR [Concomitant]
  7. VENTOLIN [Concomitant]
  8. MULTIVITAMIN [Concomitant]
  9. VIT D [Concomitant]
  10. CELEXA [Concomitant]

REACTIONS (9)
  - Drug intolerance [Unknown]
  - Influenza like illness [Unknown]
  - Vision blurred [Unknown]
  - Dysphagia [Unknown]
  - Choking [Unknown]
  - White blood cell count increased [Unknown]
  - Cognitive disorder [Unknown]
  - Asthenia [Unknown]
  - Malaise [Unknown]
